FAERS Safety Report 12723721 (Version 1)
Quarter: 2016Q3

REPORT INFORMATION
  Report Type: Spontaneous
  Country: US (occurrence: US)
  Receive Date: 20160906
  Receipt Date: 20160906
  Transmission Date: 20161109
  Serious: No
  Sender: FDA-Public Use
  Company Number: None

PATIENT
  Age: 75 Year
  Sex: Female

DRUGS (11)
  1. OCALIVA [Suspect]
     Active Substance: OBETICHOLIC ACID
     Indication: BILIARY CIRRHOSIS PRIMARY
     Route: 048
     Dates: start: 20160819
  2. AMLODIPINE [Concomitant]
     Active Substance: AMLODIPINE BESYLATE
  3. VITAMIN D [Concomitant]
     Active Substance: CHOLECALCIFEROL
  4. ONDANSETRON [Concomitant]
     Active Substance: ONDANSETRON
  5. IBUPROFEN. [Concomitant]
     Active Substance: IBUPROFEN
  6. ATIVAN [Concomitant]
     Active Substance: LORAZEPAM
  7. ENALAPRIL [Concomitant]
     Active Substance: ENALAPRIL
  8. MULTIVITAMIN [Concomitant]
     Active Substance: VITAMINS
  9. AMITIZA [Concomitant]
     Active Substance: LUBIPROSTONE
  10. PROZAC [Concomitant]
     Active Substance: FLUOXETINE HYDROCHLORIDE
  11. CALCIUM [Concomitant]
     Active Substance: CALCIUM

REACTIONS (1)
  - Pruritus [None]

NARRATIVE: CASE EVENT DATE: 20160902
